FAERS Safety Report 8346663-X (Version None)
Quarter: 2012Q2

REPORT INFORMATION
  Report Type: 
  Country: None (occurrence: None)
  Receive Date: 20120507
  Receipt Date: 20120507
  Transmission Date: 20120825
  Serious: Yes (Hospitalization)
  Sender: FDA-Public Use
  Company Number: None

PATIENT
  Age: 48 Year
  Sex: Male
  Weight: 84.6 kg

DRUGS (2)
  1. MIRTAZAPINE [Suspect]
     Dosage: 15 MG HS PO
     Route: 048
     Dates: start: 20110513, end: 20120503
  2. VENLAFAXINE [Suspect]
     Dosage: MG PO
     Route: 048
     Dates: start: 20110209, end: 20120503

REACTIONS (1)
  - MULTIPLE DRUG OVERDOSE [None]
